FAERS Safety Report 6159250-9 (Version None)
Quarter: 2009Q2

REPORT INFORMATION
  Report Type: 
  Country: None (occurrence: None)
  Receive Date: 20090417
  Receipt Date: 20090415
  Transmission Date: 20091009
  Serious: Yes (Other)
  Sender: FDA-Public Use
  Company Number: JP-ROXANE LABORATORIES, INC.-2009-RO-00380RO

PATIENT
  Age: 31 Year
  Sex: Female

DRUGS (6)
  1. MORPHINE [Suspect]
     Indication: SEDATION
     Route: 042
  2. MORPHINE [Suspect]
     Route: 008
  3. PROPOFOL [Suspect]
     Indication: SEDATION
     Route: 042
  4. DEXMEDETOMIDINE [Suspect]
     Indication: SEDATION
  5. DEXMEDETOMIDINE [Suspect]
     Indication: AGITATION
  6. ACYCLOVIR [Concomitant]
     Indication: ORAL HERPES

REACTIONS (3)
  - DYSPNOEA [None]
  - ORAL HERPES [None]
  - TACHYCARDIA [None]
